FAERS Safety Report 7845516-0 (Version None)
Quarter: 2011Q4

REPORT INFORMATION
  Report Type: 
  Country: None (occurrence: None)
  Receive Date: 20111025
  Receipt Date: 20111018
  Transmission Date: 20120403
  Serious: Yes (Death)
  Sender: FDA-Public Use
  Company Number: KR-GENZYME-MOZO-1000580

PATIENT
  Sex: Female
  Weight: 22.2 kg

DRUGS (1)
  1. MOZOBIL [Suspect]
     Indication: HAEMATOPOIETIC STEM CELL MOBILISATION
     Dosage: 6.5 MG, QD
     Route: 065
     Dates: start: 20101024, end: 20101025

REACTIONS (1)
  - INTERSTITIAL LUNG DISEASE [None]
